FAERS Safety Report 4296594-X (Version None)
Quarter: 2004Q1

REPORT INFORMATION
  Report Type: 
  Country: None (occurrence: None)
  Receive Date: 20040217
  Receipt Date: 20040205
  Transmission Date: 20041129
  Serious: Yes (Hospitalization)
  Sender: FDA-Public Use
  Company Number: GB-GLAXOSMITHKLINE-B0322483A

PATIENT
  Sex: Male

DRUGS (2)
  1. AUGMENTIN '125' [Suspect]
     Dates: start: 20011101
  2. ATENOLOL [Concomitant]

REACTIONS (7)
  - CHRONIC FATIGUE SYNDROME [None]
  - FATIGUE [None]
  - HEADACHE [None]
  - HEPATOCELLULAR DAMAGE [None]
  - JAUNDICE CHOLESTATIC [None]
  - PAIN [None]
  - VOMITING [None]
